FAERS Safety Report 18609193 (Version 4)
Quarter: 2021Q1

REPORT INFORMATION
  Report Type: Spontaneous
  Country: NL (occurrence: NL)
  Receive Date: 20201214
  Receipt Date: 20210308
  Transmission Date: 20210419
  Serious: Yes (Other)
  Sender: FDA-Public Use
  Company Number: NL-EMD SERONO-9204327

PATIENT
  Age: 42 Year
  Sex: Female
  Weight: 95 kg

DRUGS (3)
  1. DECAPEPTYL                         /00486501/ [Suspect]
     Active Substance: GONADORELIN
     Indication: IN VITRO FERTILISATION
     Dates: start: 20201123, end: 20201201
  2. DECAPEPTYL (ACETATE) [Concomitant]
     Active Substance: TRIPTORELIN ACETATE
     Indication: PRODUCT USED FOR UNKNOWN INDICATION
     Dosage: INJECTION FLUIDS, 0,1 MG/ML (MILLIGRAM PER MILLILITER)
  3. GONAL?F [Suspect]
     Active Substance: FOLLITROPIN
     Indication: IN VITRO FERTILISATION
     Route: 058
     Dates: start: 20201123, end: 20201201

REACTIONS (3)
  - Blindness [Unknown]
  - Eye haemorrhage [Unknown]
  - High response to ovarian stimulation [Unknown]

NARRATIVE: CASE EVENT DATE: 2020
